FAERS Safety Report 5177224-1 (Version None)
Quarter: 2006Q4

REPORT INFORMATION
  Report Type: 
  Country: None (occurrence: None)
  Receive Date: 20061218
  Receipt Date: 20061207
  Transmission Date: 20070319
  Serious: No
  Sender: FDA-Public Use
  Company Number: US-ELI_LILLY_AND_COMPANY-US200612001150

PATIENT
  Age: 84 Year
  Sex: Female

DRUGS (1)
  1. CYMBALTA [Suspect]
     Indication: SLEEP DISORDER
     Dates: end: 20060101

REACTIONS (1)
  - HEPATIC ENZYME INCREASED [None]
